FAERS Safety Report 12077585 (Version 1)
Quarter: 2016Q1

REPORT INFORMATION
  Report Type: Report from Study
  Country: US (occurrence: NL)
  Receive Date: 20160215
  Receipt Date: 20160215
  Transmission Date: 20160526
  Serious: Yes (Death, Hospitalization, Other)
  Sender: FDA-Public Use
  Company Number: US-BAYER-201011132GPV

PATIENT
  Age: 66 Year
  Sex: Male
  Weight: 67.8 kg

DRUGS (6)
  1. SUNITINIB [Suspect]
     Active Substance: SUNITINIB
     Indication: SMALL CELL LUNG CANCER EXTENSIVE STAGE
     Dosage: 150 MG, ONCE
     Route: 048
     Dates: start: 20090916, end: 20090916
  2. ASPIRINE PROTECT [Suspect]
     Active Substance: ASPIRIN
     Dosage: 80 MG (DAILY DOSE), QD, ORAL
     Route: 048
     Dates: start: 200703, end: 20091029
  3. SIMVASTATIN. [Concomitant]
     Active Substance: SIMVASTATIN
     Indication: ATHEROSCLEROSIS PROPHYLAXIS
     Dosage: DAILY DOSE 40 MG
     Route: 048
     Dates: start: 200703, end: 20091115
  4. SUNITINIB [Suspect]
     Active Substance: SUNITINIB
     Indication: SMALL CELL LUNG CANCER EXTENSIVE STAGE
     Dosage: 37.5 MG (DAILY DOSE), QD, ORAL
     Route: 048
     Dates: start: 200909, end: 20091029
  5. PERSANTIN [Suspect]
     Active Substance: DIPYRIDAMOLE
     Indication: HYPERTENSION
     Dosage: 200 MG (DAILY DOSE), QD, ORAL
     Route: 048
     Dates: start: 200703, end: 20091029
  6. METOPROLOL. [Concomitant]
     Active Substance: METOPROLOL
     Indication: HYPERTENSION
     Dosage: DAILY DOSE 50 MG
     Route: 048
     Dates: start: 200703, end: 20091115

REACTIONS (4)
  - Pneumonia [Not Recovered/Not Resolved]
  - Haemoptysis [Unknown]
  - Pulmonary haemorrhage [Fatal]
  - Haemoptysis [Recovered/Resolved with Sequelae]

NARRATIVE: CASE EVENT DATE: 20091029
